FAERS Safety Report 9267518 (Version 1)
Quarter: 2013Q2

REPORT INFORMATION
  Report Type: Spontaneous
  Country: US (occurrence: US)
  Receive Date: 20130502
  Receipt Date: 20130502
  Transmission Date: 20140414
  Serious: Yes (Hospitalization)
  Sender: FDA-Public Use
  Company Number: US-GLAXOSMITHKLINE-A1022225A

PATIENT
  Age: 59 Year
  Sex: Female
  Weight: 78.6 kg

DRUGS (15)
  1. ADVAIR [Suspect]
     Indication: ASTHMA
     Route: 065
  2. PROAIR HFA [Suspect]
     Indication: ASTHMA
     Route: 065
  3. QVAR [Suspect]
     Indication: PRODUCT USED FOR UNKNOWN INDICATION
     Dosage: 80MCG UNKNOWN
     Route: 065
  4. SPIRIVA [Suspect]
     Indication: ASTHMA
     Route: 065
  5. ALBUTEROL SULFATE [Concomitant]
  6. IPRATROPIUM BROMIDE [Concomitant]
  7. LEVOTHYROXINE [Concomitant]
  8. PREDNISONE [Concomitant]
  9. THEOPHYLLINE [Concomitant]
  10. VITAMIN D2 [Concomitant]
  11. MUCINEX [Concomitant]
  12. CLARITIN D [Concomitant]
  13. ADVIL [Concomitant]
  14. OXYGEN [Concomitant]
  15. NEBULIZER [Concomitant]

REACTIONS (3)
  - Lower respiratory tract infection [Unknown]
  - Asthma [Unknown]
  - Expired drug administered [Unknown]
